FAERS Safety Report 21237581 (Version 2)
Quarter: 2022Q3

REPORT INFORMATION
  Report Type: Spontaneous
  Country: US (occurrence: US)
  Receive Date: 20220822
  Receipt Date: 20220915
  Transmission Date: 20221026
  Serious: Yes (Disabling, Other)
  Sender: FDA-Public Use
  Company Number: US-REGENERON PHARMACEUTICALS, INC.-2022-109033

PATIENT
  Age: 66 Year
  Sex: Female

DRUGS (2)
  1. EYLEA [Suspect]
     Active Substance: AFLIBERCEPT
     Indication: Diabetic retinopathy
     Dosage: EVERY 4-6 WEEKS IN RIGHT EYE
     Dates: end: 2022
  2. EYLEA [Suspect]
     Active Substance: AFLIBERCEPT
     Dosage: EVERY 4-6 WEEKS IN RIGHT EYE
     Dates: start: 2022

REACTIONS (3)
  - Blindness unilateral [Unknown]
  - Ulcerative keratitis [Recovered/Resolved]
  - Visual acuity reduced [Unknown]

NARRATIVE: CASE EVENT DATE: 20220809
